FAERS Safety Report 18269240 (Version 1)
Quarter: 2020Q3

REPORT INFORMATION
  Report Type: Report from Study
  Country: GB (occurrence: GB)
  Receive Date: 20200915
  Receipt Date: 20200915
  Transmission Date: 20201103
  Serious: Yes (Death, Hospitalization)
  Sender: FDA-Public Use
  Company Number: GB-BAYER-2020-198364

PATIENT
  Age: 72 Year
  Sex: Male
  Weight: 72 kg

DRUGS (5)
  1. RED BLOOD CELLS [Concomitant]
     Active Substance: HUMAN RED BLOOD CELL
     Indication: TRANSFUSION
     Dosage: UNK
     Dates: start: 20190515
  2. HEPARIN [Concomitant]
     Active Substance: HEPARIN SODIUM
     Indication: ANTICOAGULANT THERAPY
     Dosage: 55 KILO?INTERNATIONAL UNIT TOTAL DURING SURGERY
     Route: 065
     Dates: start: 20190515, end: 20190515
  3. PLATELETS [Concomitant]
     Active Substance: HUMAN PLATELET, ALLOGENIC
     Indication: TRANSFUSION
     Dosage: UNK
     Dates: start: 20190515
  4. TRASYLOL [Suspect]
     Active Substance: APROTININ
     Indication: AORTIC DISSECTION
     Dosage: 600 MILLILITRE TOTAL LOADING DOSE 2 MILLION KIU PUMP PRIMING DOSE 2 MILLION KIU TOTAL CONTINUOUS INF
     Route: 065
     Dates: start: 20190515, end: 20190515
  5. FRESH FROZEN PLASMA [Concomitant]
     Active Substance: HUMAN PLASMA
     Indication: TRANSFUSION
     Dosage: UNK
     Dates: start: 20190515

REACTIONS (2)
  - Renal impairment [None]
  - Product use in unapproved indication [Unknown]

NARRATIVE: CASE EVENT DATE: 20190515
